FAERS Safety Report 9496666 (Version 1)
Quarter: 2013Q3

REPORT INFORMATION
  Report Type: Spontaneous
  Country: US (occurrence: US)
  Receive Date: 20130904
  Receipt Date: 20130904
  Transmission Date: 20140515
  Serious: Yes (Hospitalization)
  Sender: FDA-Public Use
  Company Number: US-AMGEN-USASP2013061073

PATIENT
  Age: 62 Year
  Sex: Female

DRUGS (4)
  1. ENBREL [Suspect]
     Indication: RHEUMATOID ARTHRITIS
     Dosage: 25 MG, 2 TIMES/WK
     Route: 065
     Dates: start: 20071231
  2. ANTIBIOTICS [Suspect]
     Indication: EAR CONGESTION
     Dosage: UNK
     Route: 065
  3. ANTIBIOTICS [Suspect]
     Indication: SINUS CONGESTION
  4. METHOTREXATE [Concomitant]
     Dosage: 1 MG, QWK

REACTIONS (11)
  - Neck pain [Recovered/Resolved]
  - Meniscus injury [Recovered/Resolved]
  - Vertigo [Not Recovered/Not Resolved]
  - Dizziness [Not Recovered/Not Resolved]
  - Sinus congestion [Not Recovered/Not Resolved]
  - Ear congestion [Not Recovered/Not Resolved]
  - Pruritus [Recovered/Resolved]
  - Vision blurred [Not Recovered/Not Resolved]
  - Arthralgia [Not Recovered/Not Resolved]
  - Exostosis [Not Recovered/Not Resolved]
  - Synovial cyst [Not Recovered/Not Resolved]
